FAERS Safety Report 15808417 (Version 2)
Quarter: 2020Q1

REPORT INFORMATION
  Report Type: Spontaneous
  Country: US (occurrence: US)
  Receive Date: 20190110
  Receipt Date: 20200221
  Transmission Date: 20200409
  Serious: Yes (Hospitalization, Other)
  Sender: FDA-Public Use
  Company Number: US-ALLERGAN-1900780US

PATIENT
  Sex: Female
  Weight: 90.7 kg

DRUGS (11)
  1. VACCINE ANTIGRIPAL [Suspect]
     Active Substance: INFLUENZA VIRUS VACCINE
     Indication: PRODUCT USED FOR UNKNOWN INDICATION
     Dosage: UNK
     Dates: start: 20181015, end: 20181015
  2. BENICAR [Concomitant]
     Active Substance: OLMESARTAN MEDOXOMIL
     Indication: HYPERTENSION
  3. PROPRANOLOL [Concomitant]
     Active Substance: PROPRANOLOL HYDROCHLORIDE
     Indication: HEART RATE INCREASED
  4. SIMVASTATIN. [Concomitant]
     Active Substance: SIMVASTATIN
     Indication: BLOOD CHOLESTEROL INCREASED
  5. ESCITALOPRAM [Concomitant]
     Active Substance: ESCITALOPRAM OXALATE
     Indication: BLOOD CHOLESTEROL INCREASED
  6. LORAZEPAM. [Concomitant]
     Active Substance: LORAZEPAM
     Indication: ANXIETY
  7. HUMIRA [Suspect]
     Active Substance: ADALIMUMAB
     Dosage: 40 MG,1 IN 2 WK
     Route: 058
     Dates: start: 2017, end: 2018
  8. TROKENDI XR [Concomitant]
     Active Substance: TOPIRAMATE
     Indication: MIGRAINE
  9. NORVASC [Concomitant]
     Active Substance: AMLODIPINE BESYLATE
     Indication: HYPERTENSION
  10. RESTASIS [Suspect]
     Active Substance: CYCLOSPORINE
     Indication: DRY EYE
     Dosage: UNK
  11. HUMIRA [Suspect]
     Active Substance: ADALIMUMAB
     Indication: RHEUMATOID ARTHRITIS
     Dosage: 40 MG,1 IN 2 WK
     Route: 058
     Dates: start: 2018

REACTIONS (29)
  - Tremor [Unknown]
  - Balance disorder [Unknown]
  - Contusion [Unknown]
  - Ankle fracture [Recovering/Resolving]
  - Rheumatoid nodule [Unknown]
  - Influenza [Unknown]
  - Dry eye [Unknown]
  - Rheumatoid arthritis [Unknown]
  - Foot fracture [Unknown]
  - Vaccination site warmth [Unknown]
  - Cataract [Unknown]
  - Osteoarthritis [Unknown]
  - Tibia fracture [Unknown]
  - Allergy to vaccine [Unknown]
  - Eye inflammation [Unknown]
  - Nasopharyngitis [Not Recovered/Not Resolved]
  - Nodule [Unknown]
  - Fall [Recovered/Resolved]
  - Fibula fracture [Unknown]
  - Increased upper airway secretion [Not Recovered/Not Resolved]
  - Dysstasia [Unknown]
  - Hypotension [Unknown]
  - Immobile [Unknown]
  - Spondylitis [Unknown]
  - Mobility decreased [Unknown]
  - Joint stiffness [Unknown]
  - Dermatitis contact [Unknown]
  - Intervertebral disc protrusion [Unknown]
  - Vaccination site swelling [Unknown]

NARRATIVE: CASE EVENT DATE: 2018
